FAERS Safety Report 25846713 (Version 1)
Quarter: 2025Q3

REPORT INFORMATION
  Report Type: Spontaneous
  Country: US (occurrence: None)
  Receive Date: 20250925
  Receipt Date: 20250925
  Transmission Date: 20251021
  Serious: Yes (Hospitalization)
  Sender: FDA-CTU
  Company Number: None

PATIENT
  Age: 83 Year
  Sex: Male
  Weight: 87.4 kg

DRUGS (1)
  1. TICE BCG [Suspect]
     Active Substance: BACILLUS CALMETTE-GUERIN SUBSTRAIN TICE LIVE ANTIGEN
     Dates: end: 20250912

REACTIONS (8)
  - Urinary tract infection [None]
  - Pneumonia [None]
  - Pneumonia [None]
  - Enterococcal infection [None]
  - Aspiration [None]
  - Sepsis [None]
  - Mitral valve incompetence [None]
  - Hiatus hernia [None]

NARRATIVE: CASE EVENT DATE: 20250915
